FAERS Safety Report 21098357 (Version 2)
Quarter: 2022Q3

REPORT INFORMATION
  Report Type: Report from Study
  Country: PL (occurrence: None)
  Receive Date: 20220719
  Receipt Date: 20220722
  Transmission Date: 20221026
  Serious: Yes (Death)
  Sender: FDA-Public Use
  Company Number: PL-ROCHE-3142108

PATIENT
  Age: 70 Year
  Sex: Female
  Weight: 65 kg

DRUGS (16)
  1. ATEZOLIZUMAB [Suspect]
     Active Substance: ATEZOLIZUMAB
     Indication: Renal cell carcinoma
     Dosage: START DATE OF MOST RECENT DOSE OF STUDY DRUG PRIOR TO AE/SAE 17/NOV/2021
     Route: 042
     Dates: start: 20210310
  2. CABOZANTINIB [Suspect]
     Active Substance: CABOZANTINIB
     Indication: Renal cell carcinoma
     Dosage: DOSE LAST STUDY DRUG ADMIN PRIOR AE/SAE 20 MG, START DATE OF MOST RECENT DOSE OF STUDY DRUG PRIOR TO
     Route: 048
     Dates: start: 20210310
  3. METOPROLOL SUCCINATE [Concomitant]
     Active Substance: METOPROLOL SUCCINATE
     Indication: Hypertension
     Route: 048
     Dates: start: 20210331
  4. LEVOTHYROXINE SODIUM [Concomitant]
     Active Substance: LEVOTHYROXINE SODIUM
     Indication: Hypothyroidism
     Route: 048
     Dates: start: 20210421
  5. LEVOTHYROXINE SODIUM [Concomitant]
     Active Substance: LEVOTHYROXINE SODIUM
     Indication: Hypertension
     Route: 048
     Dates: start: 20211117
  6. ALLOPURINOL [Concomitant]
     Active Substance: ALLOPURINOL
     Indication: Prophylaxis
     Route: 048
     Dates: start: 20210421
  7. HEPATIL [Concomitant]
     Indication: Prophylaxis
     Dosage: MEDICATION DOSE 3 TABLET
     Route: 048
     Dates: start: 20210421
  8. CITAL (POLAND) [Concomitant]
     Indication: Prophylaxis
     Route: 048
     Dates: start: 20210421
  9. FLUDROCORTISONE [Concomitant]
     Active Substance: FLUDROCORTISONE
     Indication: Prophylaxis
     Route: 048
     Dates: start: 20210421
  10. CALPEROS [Concomitant]
     Indication: Prophylaxis
     Route: 048
     Dates: start: 20210421
  11. LACTULOSE [Concomitant]
     Active Substance: LACTULOSE
     Indication: Constipation
     Route: 048
     Dates: start: 20210421
  12. MAGNES [Concomitant]
     Dosage: MEDICATION DOSE 1 TABLET
     Route: 048
     Dates: start: 20210623
  13. NEBIVOLOL [Concomitant]
     Active Substance: NEBIVOLOL
     Indication: Hypertension
     Route: 048
     Dates: start: 20210621
  14. SPIRONOLACTONE [Concomitant]
     Active Substance: SPIRONOLACTONE
     Indication: Peripheral swelling
     Route: 048
     Dates: start: 20211117
  15. HEPAREGEN [Concomitant]
     Indication: Aspartate aminotransferase increased
     Route: 048
     Dates: start: 20211117
  16. VIVACE (POLAND) [Concomitant]
     Indication: Proteinuria
     Route: 048
     Dates: start: 20211117

REACTIONS (1)
  - Death [Fatal]

NARRATIVE: CASE EVENT DATE: 20220127
